FAERS Safety Report 9056130 (Version 2)
Quarter: 2013Q1

REPORT INFORMATION
  Report Type: Spontaneous
  Country: US (occurrence: US)
  Receive Date: 20130205
  Receipt Date: 20130305
  Transmission Date: 20140127
  Serious: Yes (Hospitalization, Other)
  Sender: FDA-Public Use
  Company Number: PHEH2013US002656

PATIENT
  Sex: Male

DRUGS (11)
  1. ZOMETA [Suspect]
     Dosage: 4 MG/100ML
  2. THALOMID [Suspect]
     Indication: PLASMA CELL MYELOMA
     Dosage: 1 DF, DAILY
     Route: 048
  3. ACYCLOVIR [Concomitant]
     Dosage: UNK UKN, UNK
  4. ALKERAN [Concomitant]
     Dosage: UNK UKN, UNK
  5. ALLOPURINOL [Concomitant]
     Dosage: UNK UKN, UNK
  6. COREG CR [Concomitant]
     Dosage: UNK UKN, UNK
  7. COUMADIN [Concomitant]
     Dosage: UNK UKN, UNK
  8. DEXAMETHASONE [Concomitant]
     Dosage: UNK UKN, UNK
  9. MEPRON [Concomitant]
     Dosage: 750 MG/5 ML
  10. PROCHLORPERAZINE [Concomitant]
     Dosage: UNK UKN, UNK
  11. VANCOMYCIN HCL [Concomitant]
     Dosage: UNK UKN, UNK

REACTIONS (4)
  - Bone lesion [Unknown]
  - Plasma cell myeloma [Unknown]
  - Pain [Recovering/Resolving]
  - Nausea [Unknown]
